FAERS Safety Report 21856918 (Version 2)
Quarter: 2023Q1

REPORT INFORMATION
  Report Type: Report from Study
  Country: US (occurrence: US)
  Receive Date: 20230113
  Receipt Date: 20230117
  Transmission Date: 20230418
  Serious: Yes (Hospitalization)
  Sender: FDA-Public Use
  Company Number: US-002147023-NVSC2022US262172

PATIENT
  Age: 2 Year
  Sex: Male
  Weight: 21.1 kg

DRUGS (11)
  1. KYMRIAH [Suspect]
     Active Substance: TISAGENLECLEUCEL
     Indication: Acute lymphocytic leukaemia
     Dosage: 0.5 UNK, ONCE/SINGLE
     Route: 042
     Dates: start: 20220822
  2. CETIRIZINE [Concomitant]
     Active Substance: CETIRIZINE HYDROCHLORIDE
     Indication: Pruritus
     Dosage: UNK
     Route: 065
     Dates: start: 20220804
  3. ONDANSETRON [Concomitant]
     Active Substance: ONDANSETRON
     Indication: Prophylaxis of nausea and vomiting
     Dosage: UNK
     Route: 065
     Dates: start: 20220119, end: 20221119
  4. ONDANSETRON [Concomitant]
     Active Substance: ONDANSETRON
     Dosage: UNK
     Route: 065
     Dates: start: 20220628
  5. ACYCLOVIR [Concomitant]
     Active Substance: ACYCLOVIR
     Indication: Antiviral prophylaxis
     Dosage: UNK
     Route: 065
     Dates: start: 20220815
  6. PENTAMIDINE [Concomitant]
     Active Substance: PENTAMIDINE
     Indication: Antifungal prophylaxis
     Dosage: UNK
     Route: 065
     Dates: start: 20220908
  7. PENTAMIDINE [Concomitant]
     Active Substance: PENTAMIDINE
     Dosage: UNK
     Route: 065
     Dates: start: 20221110, end: 20221110
  8. DIPHENHYDRAMINE [Concomitant]
     Active Substance: DIPHENHYDRAMINE
     Indication: Premedication
     Dosage: UNK
     Route: 065
     Dates: start: 20221122, end: 20221122
  9. EMLA [Concomitant]
     Active Substance: LIDOCAINE\PRILOCAINE
     Indication: Premedication
     Dosage: 2.5%-2.5%
     Route: 065
     Dates: start: 20220425
  10. HEPARIN SODIUM [Concomitant]
     Active Substance: HEPARIN SODIUM
     Indication: Premedication
     Dosage: 10UNITS/ML
     Route: 065
     Dates: start: 20220124
  11. HEPARIN SODIUM [Concomitant]
     Active Substance: HEPARIN SODIUM
     Indication: Catheter management
     Dosage: 100UNITS/ML
     Route: 065
     Dates: start: 20220127

REACTIONS (1)
  - Febrile neutropenia [Recovered/Resolved]

NARRATIVE: CASE EVENT DATE: 20221119
